FAERS Safety Report 8048895-7 (Version None)
Quarter: 2012Q1

REPORT INFORMATION
  Report Type: 
  Country: None (occurrence: None)
  Receive Date: 20120117
  Receipt Date: 20120104
  Transmission Date: 20120608
  Serious: Yes (Other)
  Sender: FDA-Public Use
  Company Number: US-ELI_LILLY_AND_COMPANY-US201104005746

PATIENT
  Sex: Female
  Weight: 94.331 kg

DRUGS (2)
  1. FORTEO [Suspect]
     Indication: OSTEOPOROSIS
     Dosage: 20 UG, QD
     Route: 065
     Dates: start: 20110101
  2. FORTEO [Suspect]
     Dosage: 20 UG, QD

REACTIONS (4)
  - INJECTION SITE HAEMATOMA [None]
  - NEOPLASM [None]
  - INJECTION SITE PAIN [None]
  - DRUG DOSE OMISSION [None]
